FAERS Safety Report 8605256 (Version 4)
Quarter: 2012Q4

REPORT INFORMATION
  Report Type: 
  Country: US (occurrence: US)
  Receive Date: 20120608
  Receipt Date: 20120919
  Transmission Date: 20130627
  Serious: Yes (Hospitalization, Other)
  Sender: FDA-Public Use
  Company Number: US-ABBOTT-12P-163-0941136-00

PATIENT
  Age: 76 None
  Sex: Female

DRUGS (3)
  1. CREON [Suspect]
     Indication: PANCREATITIS CHRONIC
     Dosage: Daily with meals, 24k units
     Dates: start: 2010, end: 201106
  2. CREON [Suspect]
     Dosage: Daily with meals, 24k units
  3. PANCREASE [Suspect]
     Indication: PRODUCT USED FOR UNKNOWN INDICATION

REACTIONS (6)
  - Adenocarcinoma of colon [Recovered/Resolved]
  - Dyspnoea [Recovered/Resolved]
  - Lip swelling [Recovered/Resolved]
  - Heart rate increased [Recovered/Resolved]
  - Hypertension [Recovered/Resolved]
  - Oedema mouth [Recovered/Resolved]
